FAERS Safety Report 20010703 (Version 1)
Quarter: 2021Q4

REPORT INFORMATION
  Report Type: Spontaneous
  Country: US (occurrence: US)
  Receive Date: 20211029
  Receipt Date: 20211029
  Transmission Date: 20220303
  Serious: No
  Sender: FDA-Public Use
  Company Number: None

PATIENT
  Age: 44 Year
  Sex: Female

DRUGS (4)
  1. CASIRIVIMAB [Suspect]
     Active Substance: CASIRIVIMAB
     Indication: COVID-19
     Route: 058
     Dates: start: 20211029, end: 20211029
  2. IMDEVIMAB [Suspect]
     Active Substance: IMDEVIMAB
     Indication: COVID-19
     Dates: start: 20211029, end: 20211029
  3. CASIRIVIMAB [Concomitant]
     Active Substance: CASIRIVIMAB
     Dates: start: 20211029, end: 20211029
  4. IMDEVIMAB [Concomitant]
     Active Substance: IMDEVIMAB
     Dates: start: 20211029, end: 20211029

REACTIONS (2)
  - Erythema [None]
  - Injection site pruritus [None]

NARRATIVE: CASE EVENT DATE: 20211029
